FAERS Safety Report 6096725-5 (Version None)
Quarter: 2009Q1

REPORT INFORMATION
  Report Type: 
  Country: None (occurrence: None)
  Receive Date: 20090227
  Receipt Date: 20090219
  Transmission Date: 20090719
  Serious: Yes (Death)
  Sender: FDA-Public Use
  Company Number: IN-BAXTER-2009BH002969

PATIENT
  Sex: Male
  Weight: 60 kg

DRUGS (2)
  1. DIANEAL [Suspect]
     Indication: RENAL FAILURE CHRONIC
     Route: 033
     Dates: start: 20090107, end: 20090212
  2. DIANEAL [Suspect]
     Route: 033
     Dates: start: 20070107, end: 20090107

REACTIONS (1)
  - PERITONEAL DIALYSIS COMPLICATION [None]
